FAERS Safety Report 6480628-8 (Version None)
Quarter: 2009Q4

REPORT INFORMATION
  Report Type: 
  Country: None (occurrence: None)
  Receive Date: 20091208
  Receipt Date: 20091126
  Transmission Date: 20100525
  Serious: Yes (Hospitalization, Other)
  Sender: FDA-Public Use
  Company Number: JP-PFIZER INC-2009303840

PATIENT
  Age: 60 Year
  Sex: Female

DRUGS (8)
  1. AZULFIDINE [Suspect]
     Indication: PSORIATIC ARTHROPATHY
     Dosage: 500 MG, 2X/DAY
     Route: 048
     Dates: start: 20091110, end: 20091122
  2. ALLELOCK [Concomitant]
     Dosage: UNK
     Route: 048
     Dates: start: 20091110
  3. FAMOTIDINE [Concomitant]
     Dosage: UNK
     Route: 048
     Dates: start: 20091110
  4. DEPAKENE [Concomitant]
     Dosage: UNK
     Route: 048
  5. LENDORMIN [Concomitant]
     Dosage: UNK
     Route: 048
  6. ROHYPNOL [Concomitant]
     Dosage: UNK
     Route: 048
  7. LIMAS [Concomitant]
     Dosage: UNK
     Route: 048
  8. SELBEX [Concomitant]
     Dosage: UNK
     Route: 048

REACTIONS (7)
  - LIVER DISORDER [None]
  - MALAISE [None]
  - NAUSEA [None]
  - PANCYTOPENIA [None]
  - PYREXIA [None]
  - RASH [None]
  - VOMITING [None]
